FAERS Safety Report 7722769-0 (Version None)
Quarter: 2011Q3

REPORT INFORMATION
  Report Type: 
  Country: None (occurrence: None)
  Receive Date: 20110901
  Receipt Date: 20110823
  Transmission Date: 20111222
  Serious: No
  Sender: FDA-Public Use
  Company Number: US-BIOGENIDEC-2011BI033043

PATIENT
  Age: 63 Year
  Sex: Female

DRUGS (2)
  1. AVONEX [Suspect]
     Indication: MULTIPLE SCLEROSIS
     Route: 030
     Dates: start: 20110804, end: 20110811
  2. AVONEX [Suspect]
     Route: 030
     Dates: start: 20110818

REACTIONS (4)
  - ABDOMINAL DISTENSION [None]
  - MUSCLE SPASMS [None]
  - HAEMORRHOIDS [None]
  - PALPITATIONS [None]
